FAERS Safety Report 15868575 (Version 3)
Quarter: 2019Q2

REPORT INFORMATION
  Report Type: Spontaneous
  Country: FR (occurrence: FR)
  Receive Date: 20190125
  Receipt Date: 20190418
  Transmission Date: 20190711
  Serious: Yes (Other)
  Sender: FDA-Public Use
  Company Number: FR-VERTEX PHARMACEUTICALS-2019-000613

PATIENT
  Age: 14 Year
  Sex: Female
  Weight: 58 kg

DRUGS (24)
  1. MOPRAL                             /00661201/ [Concomitant]
     Active Substance: OMEPRAZOLE SODIUM
     Dosage: 20 MG EVENINGS
  2. FORLAX [Concomitant]
     Active Substance: POLYETHYLENE GLYCOL 4000
     Dosage: 1 SACHET, BID
  3. NEXPLANON [Concomitant]
     Active Substance: ETONOGESTREL
     Dosage: UNK
     Dates: start: 20170616, end: 20181121
  4. URSOLVAN [Concomitant]
     Active Substance: URSODIOL
     Dosage: UNK
     Dates: start: 20130220
  5. CREON [Concomitant]
     Active Substance: PANCRELIPASE AMYLASE\PANCRELIPASE LIPASE\PANCRELIPASE PROTEASE
     Dosage: 3-4 CAPS MORNINGS, 4-5 LUNCH, 3-4 AT MID AFTERNOON SNACK, 3-4 EVE., 2 CAPS IF FATTY MEAL
  6. CLARYTINE [Concomitant]
     Dosage: 1 DOSAGE FORM, QD
  7. MUCOMYST [Concomitant]
     Active Substance: ACETYLCYSTEINE
     Dosage: 1 SACHET, BID
  8. HYDROCORTISON                      /00028601/ [Concomitant]
     Active Substance: HYDROCORTISONE
     Dosage: UNK
     Dates: start: 20120418, end: 201405
  9. KALYDECO [Suspect]
     Active Substance: IVACAFTOR
     Dosage: 150 MG, BID
     Route: 048
     Dates: start: 20170223, end: 20181218
  10. SERETIDE [Concomitant]
     Active Substance: FLUTICASONE PROPIONATE\SALMETEROL XINAFOATE
     Dosage: 125MCG: 1 PUFF, BID
  11. SPORANOX [Concomitant]
     Active Substance: ITRACONAZOLE
     Dosage: UNK
     Dates: start: 20151112, end: 20170124
  12. KALYDECO [Suspect]
     Active Substance: IVACAFTOR
     Dosage: 150 MG, DAILY DOSE
     Route: 048
     Dates: start: 20150216, end: 20151112
  13. KALYDECO [Suspect]
     Active Substance: IVACAFTOR
     Dosage: UNK
     Route: 048
     Dates: start: 20190208
  14. DELURSAN [Concomitant]
     Active Substance: URSODIOL
     Dosage: 500 MG, BID
  15. SPORANOX [Concomitant]
     Active Substance: ITRACONAZOLE
     Dosage: UNK
     Dates: start: 20111019, end: 20150209
  16. COLIMYCIN                          /00013203/ [Concomitant]
     Active Substance: COLISTIN SULFATE
     Indication: PSEUDOMONAS TEST POSITIVE
  17. KALYDECO [Suspect]
     Active Substance: IVACAFTOR
     Dosage: 150 MG, TWICE A WEEK
     Route: 048
     Dates: start: 20151112, end: 20160111
  18. NASONEX [Concomitant]
     Active Substance: MOMETASONE FUROATE
     Dosage: 1 PUFF IN EACH NOSTRIL MORNINGS AND EVENINGS AFTER NASAL FOSSA IRRIGATION
  19. SPORANOX [Concomitant]
     Active Substance: ITRACONAZOLE
     Dosage: UNK
     Dates: start: 20080220, end: 20110221
  20. TOBI [Concomitant]
     Active Substance: TOBRAMYCIN
     Indication: PSEUDOMONAS TEST POSITIVE
  21. KALYDECO [Suspect]
     Active Substance: IVACAFTOR
     Indication: CYSTIC FIBROSIS
     Dosage: 150 MG, BID
     Route: 048
     Dates: start: 20121003, end: 20150216
  22. ZYMA-D2 [Concomitant]
     Active Substance: ERGOCALCIFEROL
     Dosage: 1 VIAL EVERY 6 MONTHS
  23. VENTOLIN [Concomitant]
     Active Substance: ALBUTEROL SULFATE
     Dosage: 2 PUFFS, BID
  24. CIFLOX                             /00697201/ [Concomitant]
     Active Substance: CIPROFLOXACIN
     Indication: PSEUDOMONAS TEST POSITIVE
     Dosage: UNK

REACTIONS (4)
  - Viral pericarditis [Unknown]
  - Breast swelling [Unknown]
  - Breast pain [Recovered/Resolved]
  - Menorrhagia [Unknown]

NARRATIVE: CASE EVENT DATE: 20160111
